FAERS Safety Report 4954434-7 (Version None)
Quarter: 2006Q1

REPORT INFORMATION
  Report Type: 
  Country: None (occurrence: None)
  Receive Date: 20060327
  Receipt Date: 20060213
  Transmission Date: 20060701
  Serious: Yes (Hospitalization)
  Sender: FDA-Public Use
  Company Number: 2006SE00973

PATIENT
  Age: 17153 Day
  Sex: Male
  Weight: 125 kg

DRUGS (1)
  1. MEROPENEM [Suspect]
     Indication: SEPSIS
     Route: 042
     Dates: start: 20060128, end: 20060201

REACTIONS (1)
  - BONE MARROW FAILURE [None]
